FAERS Safety Report 15288483 (Version 1)
Quarter: 2018Q3

REPORT INFORMATION
  Report Type: Spontaneous
  Country: GB (occurrence: GB)
  Receive Date: 20180817
  Receipt Date: 20180817
  Transmission Date: 20181010
  Serious: Yes (Other)
  Sender: FDA-Public Use
  Company Number: GB-TEVA-2018-GB-946264

PATIENT
  Age: 88 Year
  Sex: Male
  Weight: 106 kg

DRUGS (8)
  1. FUROSEMIDE. [Concomitant]
     Active Substance: FUROSEMIDE
     Dates: start: 20171016
  2. EPILIM [Concomitant]
     Active Substance: VALPROATE SODIUM
     Dates: start: 20151116
  3. SIMVASTATIN. [Concomitant]
     Active Substance: SIMVASTATIN
     Dosage: NIGHT
     Dates: start: 20140214
  4. PARACETAMOL [Concomitant]
     Active Substance: ACETAMINOPHEN
     Dosage: TAKE ONE OR TWO TABLETS EVERY 4 TO 6 HOURS
     Dates: start: 20130319
  5. TRAMADOL. [Suspect]
     Active Substance: TRAMADOL
     Route: 065
     Dates: start: 20180702
  6. LOPERAMIDE [Concomitant]
     Active Substance: LOPERAMIDE
     Dosage: TWO TO BE TAKEN INITIALLY FOLLOWED BY ONE
     Dates: start: 20141210
  7. PERINDOPRIL TERT?BUTYLAMINE [Concomitant]
     Active Substance: PERINDOPRIL ERBUMINE
     Dates: start: 20140214
  8. RIVAROXABAN [Concomitant]
     Active Substance: RIVAROXABAN
     Dates: start: 20170418

REACTIONS (1)
  - Convulsive threshold lowered [Recovered/Resolved]

NARRATIVE: CASE EVENT DATE: 20180706
